FAERS Safety Report 23318033 (Version 3)
Quarter: 2025Q3

REPORT INFORMATION
  Report Type: Report from Study
  Country: US (occurrence: US)
  Receive Date: 20231219
  Receipt Date: 20250930
  Transmission Date: 20251021
  Serious: Yes (Hospitalization, Disabling, Other)
  Sender: ABBVIE
  Company Number: US-ABBVIE-5420083

PATIENT
  Age: 73 Year
  Sex: Female
  Weight: 74.842 kg

DRUGS (2)
  1. HUMIRA [Suspect]
     Active Substance: ADALIMUMAB
     Indication: Crohn^s disease
     Route: 058
  2. OTEZLA [Concomitant]
     Active Substance: APREMILAST
     Indication: Product used for unknown indication
     Route: 058

REACTIONS (14)
  - Osteoarthritis [Unknown]
  - Knee operation [Recovered/Resolved]
  - Muscular weakness [Recovering/Resolving]
  - Fall [Not Recovered/Not Resolved]
  - Procedural pain [Recovering/Resolving]
  - Fall [Recovered/Resolved]
  - Hip arthroplasty [Recovered/Resolved]
  - Lower limb fracture [Not Recovered/Not Resolved]
  - Upper limb fracture [Recovering/Resolving]
  - Therapeutic product effect decreased [Unknown]
  - Rehabilitation therapy [Not Recovered/Not Resolved]
  - Skin laceration [Recovering/Resolving]
  - Hip arthroplasty [Recovered/Resolved]
  - Dehydration [Unknown]

NARRATIVE: CASE EVENT DATE: 20170101
